FAERS Safety Report 18288502 (Version 1)
Quarter: 2020Q3

REPORT INFORMATION
  Report Type: Report from Study
  Country: GB (occurrence: GB)
  Receive Date: 20200921
  Receipt Date: 20200921
  Transmission Date: 20201103
  Serious: Yes (Other)
  Sender: FDA-Public Use
  Company Number: NVSC2020GB074916

PATIENT
  Sex: Female

DRUGS (1)
  1. ERELZI [Suspect]
     Active Substance: ETANERCEPT-SZZS
     Indication: RHEUMATOID ARTHRITIS
     Dosage: 50 MG, QW
     Route: 058
     Dates: start: 20190604

REACTIONS (12)
  - Impaired gastric emptying [Unknown]
  - Stress [Unknown]
  - Oesophageal achalasia [Unknown]
  - Arthritis [Unknown]
  - Decreased appetite [Unknown]
  - Fibromyalgia [Unknown]
  - Fatigue [Unknown]
  - Malaise [Unknown]
  - Lymphadenopathy [Unknown]
  - Gastrointestinal disorder [Unknown]
  - Arthropathy [Unknown]
  - Pain [Unknown]
